FAERS Safety Report 6781331-7 (Version None)
Quarter: 2010Q2

REPORT INFORMATION
  Report Type: 
  Country: None (occurrence: None)
  Receive Date: 20100621
  Receipt Date: 20100609
  Transmission Date: 20101027
  Serious: Yes (Death)
  Sender: FDA-Public Use
  Company Number: US-NOVOPROD-310108

PATIENT
  Age: 46 Year
  Sex: Male
  Weight: 84 kg

DRUGS (2)
  1. NOVOSEVEN RT [Suspect]
     Indication: POST PROCEDURAL HAEMORRHAGE
     Dosage: 5000 UG, SINGLE
     Route: 042
     Dates: start: 20091020, end: 20091020
  2. NOVOSEVEN RT [Suspect]
     Dosage: 2000 UG, SINGLE
     Route: 042
     Dates: start: 20091020, end: 20091020

REACTIONS (1)
  - COAGULOPATHY [None]
